FAERS Safety Report 7767826-8 (Version None)
Quarter: 2011Q3

REPORT INFORMATION
  Report Type: 
  Country: None (occurrence: None)
  Receive Date: 20110922
  Receipt Date: 20110314
  Transmission Date: 20111222
  Serious: No
  Sender: FDA-Public Use
  Company Number: US-ASTRAZENECA-2011SE14042

PATIENT
  Age: 90 Year
  Sex: Female

DRUGS (5)
  1. SEROQUEL [Suspect]
     Route: 048
     Dates: start: 20110101
  2. ARICEPT [Concomitant]
  3. DIABETES CONTROLLED WITH ORAL MEDICATIONS [Concomitant]
  4. NAMENDA [Concomitant]
  5. SEROQUEL [Suspect]
     Indication: INSOMNIA
     Route: 048
     Dates: start: 20070101, end: 20110101

REACTIONS (4)
  - HALLUCINATION [None]
  - DEMENTIA ALZHEIMER'S TYPE [None]
  - INSOMNIA [None]
  - OFF LABEL USE [None]
